FAERS Safety Report 11983238 (Version 1)
Quarter: 2016Q1

REPORT INFORMATION
  Report Type: Spontaneous
  Country: AU (occurrence: AU)
  Receive Date: 20160201
  Receipt Date: 20160201
  Transmission Date: 20160526
  Serious: Yes (Other)
  Sender: FDA-Public Use
  Company Number: PHHY2016AU012093

PATIENT
  Sex: Female

DRUGS (1)
  1. ACLASTA [Suspect]
     Active Substance: ZOLEDRONIC ACID
     Indication: PRODUCT USED FOR UNKNOWN INDICATION
     Route: 065

REACTIONS (7)
  - Swollen tongue [Unknown]
  - Urticaria [Unknown]
  - Rash [Unknown]
  - Gait disturbance [Unknown]
  - Dyspnoea [Unknown]
  - Swelling face [Unknown]
  - Hypersensitivity [Unknown]
